FAERS Safety Report 23424358 (Version 1)
Quarter: 2024Q1

REPORT INFORMATION
  Report Type: Spontaneous
  Country: CA (occurrence: CA)
  Receive Date: 20240120
  Receipt Date: 20240120
  Transmission Date: 20240409
  Serious: Yes (Other)
  Sender: FDA-Public Use
  Company Number: None

PATIENT
  Age: 39 Year
  Sex: Female

DRUGS (5)
  1. MYCOPHENOLATE MOFETIL [Suspect]
     Active Substance: MYCOPHENOLATE MOFETIL
     Indication: Lupus nephritis
     Dosage: EVERY 1 DAYS
  2. PREDNISONE [Suspect]
     Active Substance: PREDNISONE
     Indication: Lupus nephritis
     Dosage: 1 EVERY 1 DAYS
     Route: 048
  3. MYCOPHENOLATE MOFETIL [Suspect]
     Active Substance: MYCOPHENOLATE MOFETIL
     Indication: Lupus nephritis
     Dosage: EVERY 1 DAYS
  4. PREDNISONE [Suspect]
     Active Substance: PREDNISONE
     Indication: Lupus nephritis
     Dosage: 1 EVERY 1 DAYS
     Route: 048
  5. PREDNISONE [Suspect]
     Active Substance: PREDNISONE
     Indication: Lupus nephritis
     Dosage: 1 EVERY 1 DAYS
     Route: 048

REACTIONS (6)
  - Cytomegalovirus chorioretinitis [Recovered/Resolved]
  - Cytomegalovirus viraemia [Recovered/Resolved]
  - Retinal degeneration [Recovered/Resolved]
  - Retinal detachment [Recovered/Resolved]
  - Visual acuity reduced [Recovered/Resolved]
  - Vitreous floaters [Recovered/Resolved]
